FAERS Safety Report 17283966 (Version 2)
Quarter: 2020Q1

REPORT INFORMATION
  Report Type: Spontaneous
  Country: US (occurrence: US)
  Receive Date: 20200117
  Receipt Date: 20200214
  Transmission Date: 20200409
  Serious: No
  Sender: FDA-Public Use
  Company Number: US-ASTRAZENECA-2020SE02481

PATIENT
  Age: 74 Year
  Sex: Male

DRUGS (1)
  1. BYDUREON BCISE [Suspect]
     Active Substance: EXENATIDE
     Indication: DIABETES MELLITUS
     Route: 065

REACTIONS (5)
  - Injection site mass [Unknown]
  - Incorrect dose administered by device [Unknown]
  - Device leakage [Unknown]
  - Depressed mood [Unknown]
  - Wrong technique in device usage process [Unknown]
